FAERS Safety Report 20644625 (Version 3)
Quarter: 2024Q1

REPORT INFORMATION
  Report Type: Spontaneous
  Country: US (occurrence: US)
  Receive Date: 20220328
  Receipt Date: 20240206
  Transmission Date: 20240409
  Serious: No
  Sender: FDA-Public Use
  Company Number: US-SA-SAC20220325001470

PATIENT
  Age: 36 Year
  Sex: Male
  Weight: 117.91 kg

DRUGS (3)
  1. DUPIXENT [Suspect]
     Active Substance: DUPILUMAB
     Indication: Dermatitis atopic
     Dosage: 300 MG, QOW
     Route: 058
     Dates: start: 20171128
  2. XYZAL [Concomitant]
     Active Substance: LEVOCETIRIZINE DIHYDROCHLORIDE
  3. RETIN-A [Concomitant]
     Active Substance: TRETINOIN

REACTIONS (4)
  - Tinea pedis [Not Recovered/Not Resolved]
  - Acne [Recovering/Resolving]
  - Injection site pain [Not Recovered/Not Resolved]
  - Rash [Unknown]
